FAERS Safety Report 16833270 (Version 1)
Quarter: 2019Q4

REPORT INFORMATION
  Report Type: Spontaneous
  Country: US (occurrence: US)
  Receive Date: 20190920
  Receipt Date: 20190920
  Transmission Date: 20200122
  Serious: Yes (Hospitalization)
  Sender: FDA-Public Use
  Company Number: None

PATIENT
  Sex: Male

DRUGS (9)
  1. GRANISETRON [Suspect]
     Active Substance: GRANISETRON
     Indication: GASTRIC CANCER
     Dosage: ?          OTHER FREQUENCY:EVERY 3 WEEKS;?
     Route: 042
     Dates: start: 20190802
  2. PACLITAXEL. [Concomitant]
     Active Substance: PACLITAXEL
  3. ESCIALOPRAM [Concomitant]
  4. CARBOPLATIN. [Concomitant]
     Active Substance: CARBOPLATIN
  5. SUCRALFATE. [Concomitant]
     Active Substance: SUCRALFATE
  6. FAMOTIDINE. [Concomitant]
     Active Substance: FAMOTIDINE
  7. ESOMEPRA [Concomitant]
     Active Substance: ESOMEPRAZOLE
  8. OXYCODONE [Concomitant]
     Active Substance: OXYCODONE
  9. PANTOPRAZOLE [Concomitant]
     Active Substance: PANTOPRAZOLE

REACTIONS (1)
  - Complication associated with device [None]
